FAERS Safety Report 6699502-7 (Version None)
Quarter: 2010Q2

REPORT INFORMATION
  Report Type: 
  Country: None (occurrence: None)
  Receive Date: 20100427
  Receipt Date: 20100427
  Transmission Date: 20101027
  Serious: Yes (Other)
  Sender: FDA-Public Use
  Company Number: None

PATIENT
  Age: 71 Year
  Sex: Female
  Weight: 54.8852 kg

DRUGS (1)
  1. SULFAMETHOPRIM-DS [Suspect]
     Indication: URINARY TRACT INFECTION
     Dosage: ONE TABLET TWICE A DAY URETHRAL
     Route: 066
     Dates: start: 20100415, end: 20100423

REACTIONS (9)
  - ERYTHEMA [None]
  - HYPOTENSION [None]
  - MUSCULOSKELETAL STIFFNESS [None]
  - NERVOUSNESS [None]
  - PALLOR [None]
  - PRURITUS [None]
  - THROAT IRRITATION [None]
  - TREMOR [None]
  - VISION BLURRED [None]
